FAERS Safety Report 22185065 (Version 1)
Quarter: 2023Q2

REPORT INFORMATION
  Report Type: Spontaneous
  Country: RU (occurrence: RU)
  Receive Date: 20230407
  Receipt Date: 20230407
  Transmission Date: 20230722
  Serious: Yes (Other)
  Sender: FDA-Public Use
  Company Number: RU-BAXTER-2023BAX017707

PATIENT
  Age: 52 Year
  Sex: Female

DRUGS (1)
  1. IFOSFAMIDE [Suspect]
     Active Substance: IFOSFAMIDE
     Dosage: 2\G
     Route: 065

REACTIONS (1)
  - Altered state of consciousness [Recovered/Resolved]

NARRATIVE: CASE EVENT DATE: 20221102
